FAERS Safety Report 8507045-0 (Version None)
Quarter: 2012Q3

REPORT INFORMATION
  Report Type: 
  Country: None (occurrence: None)
  Receive Date: 20120712
  Receipt Date: 20110830
  Transmission Date: 20120928
  Serious: No
  Sender: FDA-Public Use
  Company Number: US-BAYER-2011-079950

PATIENT

DRUGS (1)
  1. MAGNEVIST [Suspect]
     Dosage: 10 ML, ONCE

REACTIONS (1)
  - INJECTION SITE EXTRAVASATION [None]
